FAERS Safety Report 9669574 (Version 1)
Quarter: 2013Q4

REPORT INFORMATION
  Report Type: Spontaneous
  Country: US (occurrence: US)
  Receive Date: 20131105
  Receipt Date: 20131105
  Transmission Date: 20140711
  Serious: No
  Sender: FDA-Public Use
  Company Number: US-TEVA-440105USA

PATIENT
  Sex: Male

DRUGS (1)
  1. QVAR [Suspect]
     Dates: start: 20131007

REACTIONS (3)
  - General physical health deterioration [Unknown]
  - Dyspnoea [Unknown]
  - Device malfunction [Unknown]
